FAERS Safety Report 5959337-7 (Version None)
Quarter: 2008Q4

REPORT INFORMATION
  Report Type: 
  Country: None (occurrence: None)
  Receive Date: 20081117
  Receipt Date: 20081112
  Transmission Date: 20090506
  Serious: Yes (Death, Hospitalization)
  Sender: FDA-Public Use
  Company Number: 2008SP023033

PATIENT
  Age: 66 Year
  Sex: Male
  Weight: 53 kg

DRUGS (10)
  1. TEMODAL [Suspect]
     Indication: ANAPLASTIC ASTROCYTOMA
     Dosage: 75 MG/M2; QD; PO, 150 MG/M2; QD; PO, 200 MG/M2; QD; PO
     Route: 048
     Dates: start: 20080226, end: 20080407
  2. TEMODAL [Suspect]
     Indication: ANAPLASTIC ASTROCYTOMA
     Dosage: 75 MG/M2; QD; PO, 150 MG/M2; QD; PO, 200 MG/M2; QD; PO
     Route: 048
     Dates: start: 20080515, end: 20080519
  3. TEMODAL [Suspect]
     Indication: ANAPLASTIC ASTROCYTOMA
     Dosage: 75 MG/M2; QD; PO, 150 MG/M2; QD; PO, 200 MG/M2; QD; PO
     Route: 048
     Dates: start: 20080614, end: 20080618
  4. BENAMBAX [Concomitant]
  5. DEPAKENE [Concomitant]
  6. CELESTONE [Concomitant]
  7. FAMOTIDINE [Concomitant]
  8. MAGMITT [Concomitant]
  9. NAVOBAN [Concomitant]
  10. POLLAKISU [Concomitant]

REACTIONS (2)
  - GENERAL PHYSICAL HEALTH DETERIORATION [None]
  - PNEUMONIA [None]
